FAERS Safety Report 16244619 (Version 3)
Quarter: 2019Q2

REPORT INFORMATION
  Report Type: Spontaneous
  Country: CN (occurrence: CN)
  Receive Date: 20190426
  Receipt Date: 20190430
  Transmission Date: 20190711
  Serious: Yes (Other)
  Sender: FDA-Public Use
  Company Number: CN-JNJFOC-20190429588

PATIENT

DRUGS (3)
  1. INFANTS MOTRIN [Suspect]
     Active Substance: IBUPROFEN
     Indication: PATENT DUCTUS ARTERIOSUS
     Dosage: ON DAY ONE
     Route: 045
  2. INFANTS MOTRIN [Suspect]
     Active Substance: IBUPROFEN
     Indication: PATENT DUCTUS ARTERIOSUS
     Dosage: ON DAY TWO
     Route: 045
  3. INFANTS MOTRIN [Suspect]
     Active Substance: IBUPROFEN
     Indication: PATENT DUCTUS ARTERIOSUS
     Dosage: ON DAY THREE
     Route: 045

REACTIONS (8)
  - Gastrointestinal haemorrhage [Unknown]
  - Therapeutic response unexpected [Unknown]
  - Oliguria [Unknown]
  - Off label use [Unknown]
  - Electrolyte imbalance [Unknown]
  - Vomiting [Unknown]
  - Product use in unapproved indication [Unknown]
  - Hypoglycaemia [Unknown]
